FAERS Safety Report 7638022-X (Version None)
Quarter: 2011Q3

REPORT INFORMATION
  Report Type: 
  Country: None (occurrence: None)
  Receive Date: 20110720
  Receipt Date: 20110705
  Transmission Date: 20111222
  Serious: Yes (Other)
  Sender: FDA-Public Use
  Company Number: B0733146A

PATIENT

DRUGS (5)
  1. ABACAVIR SULFATE [Suspect]
     Indication: HIV INFECTION
  2. LAMIVUDINE-HIV  (LAMIVUDINE-HIV) (GENERIC) [Suspect]
     Indication: HIV INFECTION
  3. EFAVIRENZ [Suspect]
     Indication: HIV INFECTION
  4. RITONAVIR [Suspect]
     Indication: HIV INFECTION
  5. DARUNAVIR HYDRATE [Suspect]
     Indication: HIV INFECTION

REACTIONS (4)
  - ARTHRITIS [None]
  - HILAR LYMPHADENOPATHY [None]
  - RENAL IMPAIRMENT [None]
  - IMMUNE RECONSTITUTION SYNDROME [None]
